FAERS Safety Report 5379339-1 (Version None)
Quarter: 2007Q3

REPORT INFORMATION
  Report Type: 
  Country: None (occurrence: None)
  Receive Date: 20070705
  Receipt Date: 20070626
  Transmission Date: 20080115
  Serious: Yes (Disabling)
  Sender: FDA-Public Use
  Company Number: GB-PFIZER INC-2007053072

PATIENT
  Age: 75 Year
  Sex: Male
  Weight: 80 kg

DRUGS (2)
  1. ARTHROTEC [Suspect]
     Indication: OSTEOARTHRITIS
     Route: 048
     Dates: start: 20060201, end: 20061201
  2. CODEINE PHOSPHATE AND ACETAMINOPHEN [Concomitant]
     Route: 048

REACTIONS (1)
  - ALVEOLITIS [None]
